FAERS Safety Report 8256717-4 (Version None)
Quarter: 2012Q2

REPORT INFORMATION
  Report Type: 
  Country: None (occurrence: None)
  Receive Date: 20120403
  Receipt Date: 20120327
  Transmission Date: 20120825
  Serious: Yes (Hospitalization, Other)
  Sender: FDA-Public Use
  Company Number: US-JNJFOC-20120112515

PATIENT
  Sex: Male
  Weight: 127 kg

DRUGS (24)
  1. FLONASE [Concomitant]
     Indication: ASTHMA
     Route: 045
  2. LISINOPRIL [Concomitant]
     Indication: CARDIAC FAILURE CONGESTIVE
     Route: 048
  3. XARELTO [Suspect]
     Indication: THROMBOSIS PROPHYLAXIS
     Route: 048
  4. HYDROMORPHONE HCL [Concomitant]
     Indication: PAIN
  5. DITROPAN [Concomitant]
     Indication: AUTOMATIC BLADDER
     Dates: start: 20120113, end: 20120128
  6. VANCOMYCIN [Suspect]
     Indication: CELLULITIS
     Dates: start: 20120101
  7. LISINOPRIL [Concomitant]
     Indication: HYPERTENSION
     Route: 048
  8. FLOVENT [Concomitant]
     Indication: CHRONIC OBSTRUCTIVE PULMONARY DISEASE
  9. LASIX [Concomitant]
  10. CLINDAMYCIN [Concomitant]
     Indication: CELLULITIS
     Dates: start: 20120117, end: 20120128
  11. POTASSIUM CHLORIDE [Concomitant]
  12. MS CONTIN [Concomitant]
  13. XARELTO [Suspect]
     Route: 048
     Dates: start: 20111219, end: 20120124
  14. WARFARIN SODIUM [Suspect]
     Indication: DEEP VEIN THROMBOSIS
     Route: 048
     Dates: start: 20120101, end: 20120101
  15. FLOVENT [Concomitant]
     Indication: ASTHMA
  16. FLONASE [Concomitant]
     Indication: CHRONIC OBSTRUCTIVE PULMONARY DISEASE
     Route: 045
  17. VALSARTAN [Concomitant]
     Indication: CARDIAC FAILURE CONGESTIVE
     Route: 048
  18. SPIRIVA [Concomitant]
     Indication: CHRONIC OBSTRUCTIVE PULMONARY DISEASE
     Route: 055
  19. FLONASE [Concomitant]
     Indication: MULTIPLE ALLERGIES
     Route: 045
  20. ALBUTEROL [Concomitant]
     Indication: ASTHMA
     Route: 055
  21. AMLODIPINE [Concomitant]
     Indication: HYPERTENSION
  22. POTASSIUM [Concomitant]
  23. AMLODIPINE [Concomitant]
     Indication: CARDIAC FAILURE CONGESTIVE
  24. VALSARTAN [Concomitant]
     Indication: HYPERTENSION
     Route: 048

REACTIONS (5)
  - PROTHROMBIN TIME PROLONGED [None]
  - CELLULITIS [None]
  - RENAL FAILURE ACUTE [None]
  - HYPOTENSION [None]
  - INTERNATIONAL NORMALISED RATIO INCREASED [None]
